FAERS Safety Report 7827246-4 (Version None)
Quarter: 2011Q4

REPORT INFORMATION
  Report Type: 
  Country: None (occurrence: None)
  Receive Date: 20111020
  Receipt Date: 20111014
  Transmission Date: 20120403
  Serious: Yes (Other)
  Sender: FDA-Public Use
  Company Number: ZA-PFIZER INC-2011247540

PATIENT
  Age: 39 Year
  Sex: Male

DRUGS (12)
  1. ROBAXIN [Concomitant]
     Dosage: 750 MG, 8 HOURLY
     Route: 048
  2. VANCOMYCIN [Concomitant]
  3. CLINDAMYCIN [Concomitant]
     Dosage: 500 MG, 6 HOURLY
     Route: 048
  4. LYRICA [Suspect]
     Dosage: 25 MG, 2X/DAY
     Route: 048
  5. TRAMADOL [Concomitant]
     Dosage: 2 TABLETS 6 HOURLY
     Route: 048
  6. ASPIRIN [Concomitant]
     Dosage: 1 UNK, 1X/DAY
     Route: 048
  7. IMOVANE [Concomitant]
     Dosage: 7.5 MG, 1X/DAY NOCTE
     Route: 048
  8. CITALOPRAM HYDROBROMIDE [Concomitant]
     Dosage: 10 MG, 1X/DAY
     Route: 048
  9. ATERAX [Concomitant]
     Dosage: 25 MG, 8 HOURLY
     Route: 048
  10. OMNOPON [Concomitant]
     Dosage: 10 MG, 6 HOURLY
     Route: 030
  11. LIORESAL [Concomitant]
     Dosage: 5 MG, 3X/DAY
     Route: 048
  12. ENOXAPARIN SODIUM [Concomitant]
     Dosage: 40 MG, 1X/DAY
     Route: 058

REACTIONS (2)
  - RENAL FAILURE CHRONIC [None]
  - CHROMATURIA [None]
